FAERS Safety Report 23890531 (Version 1)
Quarter: 2024Q2

REPORT INFORMATION
  Report Type: Spontaneous
  Country: DE (occurrence: DE)
  Receive Date: 20240523
  Receipt Date: 20240523
  Transmission Date: 20240716
  Serious: Yes (Congenital Anomaly, Other)
  Sender: FDA-Public Use
  Company Number: DE-HORMOSAN-2023-00078

PATIENT
  Sex: Female
  Weight: 4 kg

DRUGS (4)
  1. RITONAVIR [Suspect]
     Active Substance: RITONAVIR
     Indication: Maternal exposure timing unspecified
     Dosage: 100 MILLIGRAM, QD
     Route: 064
  2. ISENTRESS [Suspect]
     Active Substance: RALTEGRAVIR POTASSIUM
     Indication: Maternal exposure timing unspecified
     Dosage: 800 MILLIGRAM, QD
     Route: 064
     Dates: end: 20220413
  3. DARUNAVIR [Suspect]
     Active Substance: DARUNAVIR
     Indication: Maternal exposure timing unspecified
     Dosage: 800 MILLIGRAM, QD
     Route: 064
  4. TIVICAY [Suspect]
     Active Substance: DOLUTEGRAVIR SODIUM
     Indication: Maternal exposure timing unspecified
     Dosage: 50 MILLIGRAM, QD
     Route: 064
     Dates: start: 20220413

REACTIONS (3)
  - Foetal exposure during pregnancy [Unknown]
  - Aortic stenosis [Unknown]
  - Atrial septal defect [Unknown]
